FAERS Safety Report 21927957 (Version 2)
Quarter: 2023Q1

REPORT INFORMATION
  Report Type: Spontaneous
  Country: HR (occurrence: HR)
  Receive Date: 20230130
  Receipt Date: 20230206
  Transmission Date: 20230418
  Serious: Yes (Hospitalization, Other)
  Sender: FDA-Public Use
  Company Number: HR-Pharmascience International Ltd.-2022-PIL-01772-INI

PATIENT
  Age: 73 Year
  Sex: Male

DRUGS (2)
  1. SUNITINIB [Suspect]
     Active Substance: SUNITINIB
     Indication: Clear cell renal cell carcinoma
     Dosage: 50MG4 WEEK DRUG INTAKE FOLLOWED BY A 2 WEEK PAUSE
     Route: 065
     Dates: start: 202110, end: 202204
  2. SUNITINIB [Suspect]
     Active Substance: SUNITINIB
     Dosage: 37.5 MILLIGRAM
     Route: 065
     Dates: start: 202204

REACTIONS (2)
  - Coronary artery occlusion [Recovered/Resolved]
  - Acute coronary syndrome [Recovered/Resolved]

NARRATIVE: CASE EVENT DATE: 20220501
